FAERS Safety Report 6354672-5 (Version None)
Quarter: 2009Q3

REPORT INFORMATION
  Report Type: 
  Country: None (occurrence: None)
  Receive Date: 20090909
  Receipt Date: 20090902
  Transmission Date: 20100115
  Serious: Yes (Hospitalization)
  Sender: FDA-Public Use
  Company Number: 2009-03300

PATIENT
  Age: 50 Year
  Sex: Female
  Weight: 167 kg

DRUGS (19)
  1. VELCADE [Suspect]
     Indication: MULTIPLE MYELOMA
  2. DOXIL [Suspect]
     Indication: MULTIPLE MYELOMA
     Dosage: 30 MG/M2, INTRAVENOUS
     Route: 042
     Dates: start: 20090605, end: 20090717
  3. REVLIMID [Suspect]
     Indication: MULTIPLE MYELOMA
  4. DEXAMETHASONE [Suspect]
     Indication: MULTIPLE MYELOMA
  5. ZOMIG [Concomitant]
  6. ACYCLOVIR [Concomitant]
  7. CALCIUM (CALCIUM) [Concomitant]
  8. CHANTIX [Concomitant]
  9. VITAMIN D [Concomitant]
  10. CAPSAICIN (CAPSAICIN) [Concomitant]
  11. CHLORHEXIDINE (CHLORHEXIDINE) [Concomitant]
  12. ASPIRIN [Concomitant]
  13. FOLIC ACID [Concomitant]
  14. GABAPENTIN [Concomitant]
  15. LIDOCAINE [Concomitant]
  16. OMEPRAZOLE [Concomitant]
  17. OXYCONTIN [Concomitant]
  18. OXYCODONE HCL [Concomitant]
  19. ZOFRAN [Concomitant]

REACTIONS (2)
  - CELLULITIS [None]
  - PALMAR-PLANTAR ERYTHRODYSAESTHESIA SYNDROME [None]
